FAERS Safety Report 10263069 (Version 2)
Quarter: 2014Q2

REPORT INFORMATION
  Report Type: Report from Study
  Country: US (occurrence: US)
  Receive Date: 20140626
  Receipt Date: 20140626
  Transmission Date: 20141212
  Serious: Yes (Life-Threatening, Hospitalization, Other)
  Sender: FDA-Public Use
  Company Number: US-MYLANLABS-2014S1000379

PATIENT
  Age: 46 Year
  Sex: Female
  Weight: 138.7 kg

DRUGS (15)
  1. CLOZAPINE TABLETS [Suspect]
     Indication: SCHIZOPHRENIA
     Route: 048
     Dates: start: 20131126, end: 20140103
  2. ABILIFY [Concomitant]
     Indication: SCHIZOPHRENIA
     Dosage: TAPERING FROM 20MG
     Route: 048
  3. ASPIRIN [Concomitant]
     Route: 048
  4. BUSPAR [Concomitant]
     Route: 048
  5. CALCIUM + VITAMIN D [Concomitant]
     Dosage: STRENGTH IS 500/200 MG
     Route: 048
  6. BYETTA [Concomitant]
     Indication: DIABETES MELLITUS
     Dosage: INJECTION
     Route: 058
  7. FERROUS GLUCONATE [Concomitant]
     Route: 048
  8. HYDROXYZINE [Concomitant]
     Route: 048
  9. LITHIUM CARBONATE EXTENDED-RELEASE TABLETS USP [Concomitant]
     Indication: SCHIZOPHRENIA
     Route: 048
  10. OMEPRAZOLE [Concomitant]
     Route: 048
  11. OXYCODONE [Concomitant]
     Dosage: PRN
     Route: 048
  12. SERTRALINE [Concomitant]
     Route: 048
  13. ZOLPIDEM [Concomitant]
     Route: 048
  14. DOXYCYCLINE [Concomitant]
     Indication: OSTEOMYELITIS
     Route: 048
  15. AMBIEN [Concomitant]

REACTIONS (3)
  - Agranulocytosis [Recovered/Resolved]
  - Leukopenia [Recovered/Resolved]
  - Osteomyelitis [Not Recovered/Not Resolved]
